FAERS Safety Report 9367750 (Version 1)
Quarter: 2013Q2

REPORT INFORMATION
  Report Type: Spontaneous
  Country: US (occurrence: US)
  Receive Date: 20130625
  Receipt Date: 20130625
  Transmission Date: 20140414
  Serious: Yes (Hospitalization, Other)
  Sender: FDA-Public Use
  Company Number: US-ASTELLAS-2010US004520

PATIENT
  Sex: Female
  Weight: 69 kg

DRUGS (10)
  1. VESICARE [Suspect]
     Indication: URINARY INCONTINENCE
     Dosage: 10 MG, UID/QD
     Route: 048
     Dates: start: 2007, end: 201208
  2. VESICARE [Suspect]
     Indication: POLLAKIURIA
  3. VESICARE [Suspect]
     Indication: HYPERTONIC BLADDER
  4. DRUGS FOR FUNCTIONAL GASTROINTEST. DISORDERS [Concomitant]
     Indication: GASTRIC DISORDER
     Dosage: UNK
     Route: 048
  5. RISPERDAL [Concomitant]
     Indication: PRODUCT USED FOR UNKNOWN INDICATION
     Dosage: UNK
     Route: 065
  6. XANAX [Concomitant]
     Indication: PRODUCT USED FOR UNKNOWN INDICATION
     Dosage: UNK
     Route: 065
  7. ANTIHYPERTENSIVES [Concomitant]
     Indication: HYPERTENSION
     Dosage: UNK
     Route: 048
  8. COUMADIN [Concomitant]
     Indication: PRODUCT USED FOR UNKNOWN INDICATION
     Dosage: 4 MG, QOD
     Route: 048
  9. FISH OIL [Concomitant]
     Indication: PRODUCT USED FOR UNKNOWN INDICATION
     Dosage: UNK
     Route: 065
  10. ZANTAC [Concomitant]
     Indication: PRODUCT USED FOR UNKNOWN INDICATION
     Dosage: UNK
     Route: 065

REACTIONS (13)
  - Drug ineffective [Not Recovered/Not Resolved]
  - Cardiac disorder [Unknown]
  - Lung disorder [Unknown]
  - Heart valve incompetence [Unknown]
  - Respiratory disorder [Unknown]
  - Cardiovascular insufficiency [Unknown]
  - Bladder pain [Unknown]
  - Nocturia [Not Recovered/Not Resolved]
  - Eye pain [Unknown]
  - Urinary tract infection [Unknown]
  - Oedema peripheral [Unknown]
  - Dry eye [Unknown]
  - Headache [Unknown]
